FAERS Safety Report 7271050-5 (Version None)
Quarter: 2011Q1

REPORT INFORMATION
  Report Type: 
  Country: None (occurrence: None)
  Receive Date: 20110202
  Receipt Date: 20110128
  Transmission Date: 20110831
  Serious: Yes (Other)
  Sender: FDA-Public Use
  Company Number: FR-PFIZER INC-2011021402

PATIENT
  Age: 70 Year
  Sex: Male

DRUGS (5)
  1. INFLUENZA VACCINE [Concomitant]
     Dosage: UNK
     Dates: start: 20091201
  2. INSPRA [Suspect]
     Dosage: UNK
     Dates: start: 20090701
  3. DIGOXIN [Concomitant]
  4. NEBIVOLOL [Concomitant]
  5. ATACAND [Concomitant]

REACTIONS (1)
  - TESTICULAR MASS [None]
